FAERS Safety Report 7547845-7 (Version None)
Quarter: 2011Q2

REPORT INFORMATION
  Report Type: 
  Country: None (occurrence: None)
  Receive Date: 20110615
  Receipt Date: 20110607
  Transmission Date: 20111010
  Serious: Yes (Hospitalization, Other)
  Sender: FDA-Public Use
  Company Number: US-BIOGENIDEC-2011BI021129

PATIENT
  Sex: Female

DRUGS (1)
  1. AVONEX [Suspect]
     Indication: MULTIPLE SCLEROSIS
     Route: 030

REACTIONS (10)
  - DECUBITUS ULCER [None]
  - VOMITING [None]
  - MENTAL STATUS CHANGES [None]
  - GASTROOESOPHAGEAL REFLUX DISEASE [None]
  - URINARY TRACT INFECTION [None]
  - JOINT CONTRACTURE [None]
  - CONSTIPATION [None]
  - EXTREMITY CONTRACTURE [None]
  - SEPSIS [None]
  - FAILURE TO THRIVE [None]
